FAERS Safety Report 24910460 (Version 1)
Quarter: 2025Q1

REPORT INFORMATION
  Report Type: Spontaneous
  Country: US (occurrence: None)
  Receive Date: 20250130
  Receipt Date: 20250130
  Transmission Date: 20250408
  Serious: Yes (Life-Threatening, Hospitalization)
  Sender: FDA-CTU
  Company Number: None

PATIENT
  Age: 65 Year
  Sex: Female
  Weight: 74.5 kg

DRUGS (19)
  1. PERFLUTREN [Suspect]
     Active Substance: PERFLUTREN
     Indication: Echocardiogram
     Route: 040
     Dates: start: 20250123, end: 20250123
  2. EPINEPHRINE [Suspect]
     Active Substance: EPINEPHRINE
  3. PROPOFOL [Suspect]
     Active Substance: PROPOFOL
  4. FENTANYL [Suspect]
     Active Substance: FENTANYL
  5. Ceftriaxone 1g [Concomitant]
     Dates: start: 20250123
  6. ENOXAPARIN [Concomitant]
     Active Substance: ENOXAPARIN
     Dates: start: 20250123
  7. Insulin lispro sliding scale [Concomitant]
     Dates: start: 20250123
  8. Pantoprazole 40mg IV [Concomitant]
     Dates: start: 20250123, end: 20250123
  9. MAGNESIUM OXIDE 400MG [Concomitant]
     Active Substance: MAGNESIUM OXIDE
     Dates: start: 20250123
  10. Potassium bicarbonate 20mEq [Concomitant]
     Dates: start: 20250123
  11. Dexmedetomidine drip [Concomitant]
     Dates: start: 20250125
  12. Fentanyl drip [Concomitant]
     Dates: start: 20250123
  13. HEPARIN [Concomitant]
     Active Substance: HEPARIN SODIUM
     Dates: start: 20250127
  14. Norepinephrine drip [Concomitant]
     Dates: start: 20250124, end: 20250126
  15. PLASMALYTE A [Concomitant]
     Dates: start: 20250123, end: 20250124
  16. PROPOFOL [Concomitant]
     Active Substance: PROPOFOL
     Dates: start: 20250123, end: 20250129
  17. ALBUMIN HUMAN [Concomitant]
     Active Substance: ALBUMIN HUMAN
  18. ASPIRIN [Concomitant]
     Active Substance: ASPIRIN
  19. ATORVASTATIN [Concomitant]
     Active Substance: ATORVASTATIN

REACTIONS (4)
  - Contrast media reaction [None]
  - Unresponsive to stimuli [None]
  - Vomiting [None]
  - Cardio-respiratory arrest [None]

NARRATIVE: CASE EVENT DATE: 20250101
